FAERS Safety Report 12140078 (Version 1)
Quarter: 2016Q1

REPORT INFORMATION
  Report Type: Spontaneous
  Country: KR (occurrence: KR)
  Receive Date: 20160303
  Receipt Date: 20160303
  Transmission Date: 20160526
  Serious: Yes (Hospitalization)
  Sender: FDA-Public Use
  Company Number: KR-AMGEN-KORCT2016025707

PATIENT
  Age: 56 Year
  Sex: Male
  Weight: 81 kg

DRUGS (9)
  1. TASNA [Concomitant]
     Dosage: 3000 MG, UNK
     Route: 048
     Dates: start: 20150408
  2. RENALMIN [Concomitant]
     Dosage: 1 TAB
     Route: 048
     Dates: start: 20150216
  3. BACTROBAN [Concomitant]
     Active Substance: MUPIROCIN\MUPIROCIN CALCIUM
     Dosage: 1 APPLICATION
     Route: 061
     Dates: start: 20150408
  4. FEROBA U [Concomitant]
     Dosage: 2 TAB
     Route: 048
     Dates: start: 20150408
  5. DULCOLAX-S [Concomitant]
     Dosage: 1 TAB
     Route: 048
     Dates: start: 20150701
  6. CALCIO                             /00183801/ [Concomitant]
     Dosage: 0.25 MUG, UNK
     Route: 048
     Dates: start: 20150408
  7. PHOSLO [Concomitant]
     Active Substance: CALCIUM ACETATE
     Dosage: 2840 MG, UNK
     Route: 048
     Dates: start: 20150701
  8. REGPARA [Suspect]
     Active Substance: CINACALCET HYDROCHLORIDE
     Indication: HYPERPARATHYROIDISM SECONDARY
     Dosage: 25 MG, QD
     Route: 048
     Dates: start: 20150701
  9. LOSARTAN. [Concomitant]
     Active Substance: LOSARTAN
     Dosage: 50 MG, UNK
     Route: 048
     Dates: start: 20150506

REACTIONS (1)
  - Peritonitis [Recovered/Resolved]

NARRATIVE: CASE EVENT DATE: 20150727
